FAERS Safety Report 7901668-5 (Version None)
Quarter: 2011Q4

REPORT INFORMATION
  Report Type: 
  Country: None (occurrence: None)
  Receive Date: 20111108
  Receipt Date: 20111103
  Transmission Date: 20120403
  Serious: Yes (Death)
  Sender: FDA-Public Use
  Company Number: GB-JNJFOC-20111102404

PATIENT

DRUGS (6)
  1. RADIOTHERAPY [Suspect]
     Indication: HODGKIN'S DISEASE
     Dosage: CYCLE 1
     Route: 065
  2. ANTIRETROVIRAL MEDICATIONS [Concomitant]
     Indication: HIV INFECTION
     Route: 065
  3. BLEOMYCIN SULFATE [Suspect]
     Indication: HODGKIN'S DISEASE
     Dosage: CYCLE 1
     Route: 065
  4. DOXORUBICIN HCL [Suspect]
     Indication: HODGKIN'S DISEASE
     Dosage: CYCLE 1
     Route: 042
  5. VINBLASTINE SULFATE [Suspect]
     Indication: HODGKIN'S DISEASE
     Dosage: CYCLE 1
     Route: 065
  6. DACARBAZINE [Suspect]
     Indication: HODGKIN'S DISEASE
     Dosage: CYCLE 1
     Route: 065

REACTIONS (1)
  - TOXICITY TO VARIOUS AGENTS [None]
